FAERS Safety Report 17945855 (Version 11)
Quarter: 2021Q3

REPORT INFORMATION
  Report Type: Spontaneous
  Country: CA (occurrence: CA)
  Receive Date: 20200626
  Receipt Date: 20210924
  Transmission Date: 20211014
  Serious: Yes (Other)
  Sender: FDA-Public Use
  Company Number: CA-CELLTRION INC.-2019CA028176

PATIENT

DRUGS (18)
  1. INFLECTRA [Suspect]
     Active Substance: INFLIXIMAB-DYYB
     Indication: CROHN^S DISEASE
     Dosage: 500 MG, Q (EVERY) 0, 2, 6 WEEKS, EVERY 8 WEEKS
     Route: 042
     Dates: start: 20191119
  2. INFLECTRA [Suspect]
     Active Substance: INFLIXIMAB-DYYB
     Dosage: 500 MG, Q (EVERY) 0, 2, 6 WEEKS, EVERY 8 WEEKS
     Route: 042
     Dates: start: 20200421
  3. INFLECTRA [Suspect]
     Active Substance: INFLIXIMAB-DYYB
     Dosage: 500 MG, Q (EVERY) 0, 2, 6 WEEKS, EVERY 8 WEEKS
     Route: 042
     Dates: start: 20200616
  4. INFLECTRA [Suspect]
     Active Substance: INFLIXIMAB-DYYB
     Dosage: 500 MG, Q (EVERY) 0, 2, 6 WEEKS, EVERY 8 WEEKS
     Route: 042
     Dates: start: 20210714
  5. DIPHENHYDRAMINE. [Concomitant]
     Active Substance: DIPHENHYDRAMINE
     Dosage: 25?50 MG
     Route: 042
  6. DIPHENHYDRAMINE. [Concomitant]
     Active Substance: DIPHENHYDRAMINE
     Indication: PREMEDICATION
     Dosage: 25?50 MG
     Route: 048
  7. MEZAVANT [Concomitant]
     Active Substance: MESALAMINE
     Dosage: 4.8 G, 1X/DAY
  8. INFLECTRA [Suspect]
     Active Substance: INFLIXIMAB-DYYB
     Dosage: 500 MG, Q (EVERY) 0, 2, 6 WEEKS, EVERY 8 WEEKS
     Route: 042
     Dates: start: 20191231
  9. INFLECTRA [Suspect]
     Active Substance: INFLIXIMAB-DYYB
     Dosage: 500 MG, Q (EVERY) 0, 2, 6 WEEKS, EVERY 8 WEEKS
     Route: 042
     Dates: start: 20210324
  10. BENADRYL [Concomitant]
     Active Substance: DIPHENHYDRAMINE HYDROCHLORIDE
     Dosage: 25 MG
     Route: 048
     Dates: start: 20200811, end: 20200811
  11. PREDNISONE. [Concomitant]
     Active Substance: PREDNISONE
     Dosage: 40 MG
     Route: 048
  12. INFLECTRA [Suspect]
     Active Substance: INFLIXIMAB-DYYB
     Dosage: 500 MG, Q (EVERY) 0, 2, 6 WEEKS, EVERY 8 WEEKS
     Route: 042
     Dates: start: 20191204
  13. INFLECTRA [Suspect]
     Active Substance: INFLIXIMAB-DYYB
     Dosage: 500 MG, Q (EVERY) 0, 2, 6 WEEKS, EVERY 8 WEEKS
     Route: 042
     Dates: start: 20210519
  14. MEZAVANT [Concomitant]
     Active Substance: MESALAMINE
     Dosage: 1.8 MG
  15. INFLECTRA [Suspect]
     Active Substance: INFLIXIMAB-DYYB
     Dosage: 500 MG, Q (EVERY) 0, 2, 6 WEEKS, EVERY 8 WEEKS
     Route: 042
     Dates: start: 20200224
  16. INFLECTRA [Suspect]
     Active Substance: INFLIXIMAB-DYYB
     Dosage: 500 MG, Q (EVERY) 0, 2, 6 WEEKS, EVERY 8 WEEKS
     Route: 042
     Dates: start: 20201007
  17. INFLECTRA [Suspect]
     Active Substance: INFLIXIMAB-DYYB
     Dosage: 500 MG, Q (EVERY) 0, 2, 6 WEEKS, EVERY 8 WEEKS
     Route: 042
     Dates: start: 20210127
  18. INFLECTRA [Suspect]
     Active Substance: INFLIXIMAB-DYYB
     Dosage: 500 MG, Q (EVERY) 0, 2, 6 WEEKS, EVERY 8 WEEKS
     Route: 042
     Dates: start: 20200811

REACTIONS (18)
  - Cataract [Unknown]
  - Arthralgia [Not Recovered/Not Resolved]
  - Rash [Not Recovered/Not Resolved]
  - Visual impairment [Unknown]
  - Fistula [Unknown]
  - Condition aggravated [Unknown]
  - Blood pressure increased [Not Recovered/Not Resolved]
  - Pruritus [Not Recovered/Not Resolved]
  - Off label use [Unknown]
  - Intentional product use issue [Unknown]
  - Blood glucose increased [Unknown]
  - Dizziness [Unknown]
  - Diplopia [Recovering/Resolving]
  - Feeling abnormal [Unknown]
  - Headache [Unknown]
  - Drug specific antibody present [Unknown]
  - Erythema [Not Recovered/Not Resolved]
  - Drug ineffective [Unknown]

NARRATIVE: CASE EVENT DATE: 20200422
